FAERS Safety Report 9287525 (Version 6)
Quarter: 2013Q4

REPORT INFORMATION
  Report Type: Report from Study
  Country: AR (occurrence: AR)
  Receive Date: 20130514
  Receipt Date: 20131217
  Transmission Date: 20140711
  Serious: Yes (Hospitalization)
  Sender: FDA-Public Use
  Company Number: AR-PFIZER INC-2013142376

PATIENT
  Age: 40 Year
  Sex: Male
  Weight: 95.1 kg

DRUGS (3)
  1. TOFACITINIB CITRATE [Suspect]
     Indication: RHEUMATOID ARTHRITIS
     Dosage: 10 MG, 2X/DAY
     Route: 048
     Dates: start: 20120823, end: 20130328
  2. METHOTREXATE SODIUM [Suspect]
     Indication: RHEUMATOID ARTHRITIS
     Dosage: 10 TO 20 MG, WEEKLY
     Route: 048
     Dates: start: 20120823, end: 20130328
  3. FOLIC ACID [Concomitant]
     Dosage: UNK
     Dates: start: 20120825

REACTIONS (1)
  - Anal abscess [Recovered/Resolved]
